FAERS Safety Report 11804143 (Version 1)
Quarter: 2015Q4

REPORT INFORMATION
  Report Type: Spontaneous
  Country: US (occurrence: US)
  Receive Date: 20151204
  Receipt Date: 20151204
  Transmission Date: 20160305
  Serious: No
  Sender: FDA-Public Use
  Company Number: US-BAUSCH-BL-2014-009380

PATIENT
  Age: 46 Year
  Sex: Female

DRUGS (3)
  1. XENAZINE [Suspect]
     Active Substance: TETRABENAZINE
     Indication: HUNTINGTON^S DISEASE
     Route: 048
     Dates: start: 201412
  2. XENAZINE [Suspect]
     Active Substance: TETRABENAZINE
     Route: 048
     Dates: start: 201412
  3. ARICEPT [Suspect]
     Active Substance: DONEPEZIL HYDROCHLORIDE
     Indication: PRODUCT USED FOR UNKNOWN INDICATION
     Route: 048

REACTIONS (10)
  - Depression [Unknown]
  - Refusal of treatment by patient [Unknown]
  - Abdominal distension [Unknown]
  - Fatigue [Unknown]
  - Aggression [Unknown]
  - Abdominal pain upper [Unknown]
  - Verbal abuse [Unknown]
  - Vomiting [Unknown]
  - Insomnia [Unknown]
  - Dementia [Unknown]

NARRATIVE: CASE EVENT DATE: 2014
